FAERS Safety Report 22333730 (Version 5)
Quarter: 2024Q1

REPORT INFORMATION
  Report Type: Report from Study
  Country: US (occurrence: US)
  Receive Date: 20230517
  Receipt Date: 20240202
  Transmission Date: 20240410
  Serious: Yes (Other)
  Sender: FDA-Public Use
  Company Number: US-ABBVIE-4766242

PATIENT
  Age: 59 Year
  Sex: Female

DRUGS (2)
  1. RINVOQ [Suspect]
     Active Substance: UPADACITINIB
     Indication: Rheumatoid arthritis
     Route: 048
     Dates: start: 20200401
  2. RINVOQ [Suspect]
     Active Substance: UPADACITINIB
     Indication: Rheumatoid arthritis
     Route: 048
     Dates: start: 20220103

REACTIONS (12)
  - Vagal nerve stimulator implantation [Unknown]
  - Mobility decreased [Recovering/Resolving]
  - Pain [Recovering/Resolving]
  - Sleep disorder [Unknown]
  - Arthralgia [Unknown]
  - Immunodeficiency [Unknown]
  - Attention deficit hyperactivity disorder [Unknown]
  - Infusion site vesicles [Unknown]
  - Joint swelling [Unknown]
  - Pharyngeal mass [Recovering/Resolving]
  - Skin infection [Recovering/Resolving]
  - Peripheral swelling [Recovering/Resolving]

NARRATIVE: CASE EVENT DATE: 20200401
